FAERS Safety Report 15942722 (Version 2)
Quarter: 2019Q2

REPORT INFORMATION
  Report Type: Spontaneous
  Country: US (occurrence: US)
  Receive Date: 20190209
  Receipt Date: 20190409
  Transmission Date: 20190711
  Serious: Yes (Other)
  Sender: FDA-Public Use
  Company Number: US-ASTRAZENECA-2018SF33344

PATIENT
  Age: 37 Year
  Sex: Male

DRUGS (23)
  1. PRILOSEC [Suspect]
     Active Substance: OMEPRAZOLE MAGNESIUM
     Dosage: GENERIC
     Route: 065
     Dates: start: 2012, end: 2017
  2. PRILOSEC [Suspect]
     Active Substance: OMEPRAZOLE MAGNESIUM
     Route: 048
     Dates: start: 2007
  3. PRILOSEC OTC [Suspect]
     Active Substance: OMEPRAZOLE MAGNESIUM
     Route: 048
     Dates: start: 2007
  4. LEVAQUIN [Concomitant]
     Active Substance: LEVOFLOXACIN
  5. OXYCODONE-ACETAMINOPHEN [Concomitant]
     Active Substance: ACETAMINOPHEN\OXYCODONE HYDROCHLORIDE
  6. CIPROFLOXACIN. [Concomitant]
     Active Substance: CIPROFLOXACIN
  7. DULOXETINE. [Concomitant]
     Active Substance: DULOXETINE
  8. PRILOSEC OTC [Suspect]
     Active Substance: OMEPRAZOLE MAGNESIUM
     Route: 048
     Dates: start: 2008, end: 2009
  9. PANTOPRAZOLE [Suspect]
     Active Substance: PANTOPRAZOLE
     Route: 048
     Dates: start: 2014, end: 2016
  10. RANITIDINE. [Concomitant]
     Active Substance: RANITIDINE
  11. NICOTINE. [Concomitant]
     Active Substance: NICOTINE
  12. FLUOXETINE [Concomitant]
     Active Substance: FLUOXETINE HYDROCHLORIDE
  13. GABAPENTIN. [Concomitant]
     Active Substance: GABAPENTIN
  14. METHOCARBAMOL. [Concomitant]
     Active Substance: METHOCARBAMOL
  15. ALBUTEROL. [Concomitant]
     Active Substance: ALBUTEROL
  16. NAPROXEN. [Concomitant]
     Active Substance: NAPROXEN
  17. DEXAMETHASONE. [Concomitant]
     Active Substance: DEXAMETHASONE
  18. NEXIUM 24HR [Suspect]
     Active Substance: ESOMEPRAZOLE MAGNESIUM
     Route: 048
     Dates: start: 2007
  19. CIPROFLOXACIN. [Concomitant]
     Active Substance: CIPROFLOXACIN
  20. IBUPROFEN. [Concomitant]
     Active Substance: IBUPROFEN
  21. TRAZODONE [Concomitant]
     Active Substance: TRAZODONE HYDROCHLORIDE
  22. CEPHALEXIN. [Concomitant]
     Active Substance: CEPHALEXIN
  23. TAMSULOSIN [Concomitant]
     Active Substance: TAMSULOSIN

REACTIONS (3)
  - Acute kidney injury [Not Recovered/Not Resolved]
  - Renal failure [Not Recovered/Not Resolved]
  - Chronic kidney disease [Unknown]

NARRATIVE: CASE EVENT DATE: 2015
